FAERS Safety Report 5130510-3 (Version None)
Quarter: 2006Q4

REPORT INFORMATION
  Report Type: 
  Country: None (occurrence: None)
  Receive Date: 20061019
  Receipt Date: 20061009
  Transmission Date: 20070319
  Serious: Yes (Life-Threatening, Hospitalization)
  Sender: FDA-Public Use
  Company Number: AT-GLAXOSMITHKLINE-B0442639A

PATIENT
  Age: 49 Year
  Sex: Male

DRUGS (15)
  1. AUGMENTIN [Suspect]
     Dosage: 2G PER DAY
     Dates: start: 20051230
  2. LORAZEPAM [Suspect]
     Dosage: 25MG PER DAY
     Dates: start: 20051230
  3. OXCARBAZEPINE [Concomitant]
     Dosage: 1200MG PER DAY
     Dates: start: 20051230
  4. ESOMEPRAZOLE MAGNESIUM [Concomitant]
     Dosage: 40MG PER DAY
     Dates: start: 20051230
  5. OMNIFLORA [Concomitant]
     Dosage: 3CAP PER DAY
     Dates: start: 20051230
  6. VITAMINE B1 B6 B12 [Concomitant]
     Dosage: 8TAB PER DAY
     Dates: start: 20051230
  7. FOLIC ACID [Concomitant]
     Dosage: 8TAB PER DAY
     Dates: start: 20051230
  8. VITAMINE B1 [Concomitant]
     Dosage: 250MG PER DAY
     Dates: start: 20051230
  9. CEVITOL [Concomitant]
     Dosage: 500MG PER DAY
     Dates: start: 20051230
  10. MUCOSOLVAN [Concomitant]
     Dosage: 6ML PER DAY
     Dates: start: 20051230
  11. ENOXAPARIN SODIUM [Concomitant]
     Dosage: 80MG PER DAY
     Dates: start: 20051230
  12. CLONIDINE [Concomitant]
     Dosage: 3.5MLH PER DAY
     Route: 042
     Dates: start: 20051230
  13. HALOPERIDOL [Concomitant]
     Dosage: 5MG PER DAY
     Dates: start: 20051230
  14. DOMINAL [Concomitant]
     Dosage: 40MG PER DAY
     Dates: start: 20051230
  15. NUTRISON [Concomitant]
     Dosage: 1000ML PER DAY
     Dates: start: 20051230

REACTIONS (1)
  - ACUTE MYOCARDIAL INFARCTION [None]
